FAERS Safety Report 23836343 (Version 1)
Quarter: 2024Q2

REPORT INFORMATION
  Report Type: Report from Study
  Country: JP (occurrence: JP)
  Receive Date: 20240509
  Receipt Date: 20240509
  Transmission Date: 20240715
  Serious: Yes (Hospitalization)
  Sender: FDA-Public Use
  Company Number: JP-BAYER-2024A067146

PATIENT

DRUGS (1)
  1. KERENDIA [Suspect]
     Active Substance: FINERENONE

REACTIONS (2)
  - Renal impairment [None]
  - Blood potassium increased [None]
